FAERS Safety Report 21994054 (Version 4)
Quarter: 2023Q1

REPORT INFORMATION
  Report Type: Other
  Country: DE (occurrence: None)
  Receive Date: 20230215
  Receipt Date: 20230323
  Transmission Date: 20230417
  Serious: Yes (Death)
  Sender: FDA-Public Use
  Company Number: DE-ROCHE-3286556

PATIENT
  Age: 65 Year
  Sex: Female
  Weight: 76 kg

DRUGS (1)
  1. CAPECITABINE [Suspect]
     Active Substance: CAPECITABINE
     Indication: Breast cancer
     Dosage: ON 23/JAN/2023 MOST RECENT DOSE WAS ADMINISTERED IS 500 MG
     Route: 048
     Dates: start: 20220530, end: 20230125

REACTIONS (2)
  - Acute respiratory distress syndrome [Fatal]
  - Platelet count increased [Not Recovered/Not Resolved]

NARRATIVE: CASE EVENT DATE: 20230123
